FAERS Safety Report 10982234 (Version 2)
Quarter: 2015Q3

REPORT INFORMATION
  Report Type: Report from Study
  Country: DE (occurrence: DE)
  Receive Date: 20150403
  Receipt Date: 20150709
  Transmission Date: 20151125
  Serious: Yes (Hospitalization, Other)
  Sender: FDA-Public Use
  Company Number: DE-ROCHE-1515156

PATIENT
  Age: 53 Year
  Sex: Female
  Weight: 64 kg

DRUGS (34)
  1. 5-FLUOROURACIL [Concomitant]
     Active Substance: FLUOROURACIL
     Route: 041
     Dates: start: 20150414, end: 20150414
  2. FOLINIC ACID [Concomitant]
     Active Substance: LEUCOVORIN
     Route: 042
     Dates: start: 20141202, end: 20150203
  3. NOVAMINSULFON [Concomitant]
     Active Substance: METAMIZOLE
     Indication: PAIN
     Route: 048
     Dates: start: 20140507
  4. DIMENHYDRINATE. [Concomitant]
     Active Substance: DIMENHYDRINATE
     Indication: VOMITING
     Dosage: 1 AMPULE
     Route: 065
  5. CAPECITABINE. [Suspect]
     Active Substance: CAPECITABINE
     Indication: COLORECTAL CANCER
     Dosage: D1-D14 EVERY 3 WEEKS
     Route: 048
     Dates: start: 20150224, end: 20150309
  6. VOMEX (UNK INGREDIENTS) [Concomitant]
     Indication: VOMITING
     Route: 054
     Dates: start: 20140513
  7. 5-FLUOROURACIL [Concomitant]
     Active Substance: FLUOROURACIL
     Indication: COLORECTAL CANCER
     Route: 040
     Dates: start: 20140430, end: 20150203
  8. FOLINIC ACID [Concomitant]
     Active Substance: LEUCOVORIN
     Dosage: ONCE
     Route: 042
     Dates: start: 20141118, end: 20141118
  9. FOLINIC ACID [Concomitant]
     Active Substance: LEUCOVORIN
     Route: 042
     Dates: start: 20150414, end: 20150414
  10. KEVATRIL [Concomitant]
     Active Substance: GRANISETRON HYDROCHLORIDE
     Indication: NAUSEA
     Dosage: ON D1 CYCLICAL
     Route: 042
     Dates: start: 20140430
  11. TRAMAL [Concomitant]
     Active Substance: TRAMADOL
     Dosage: 20 DROPS AS REQUIRED
     Route: 065
  12. 5-FLUOROURACIL [Concomitant]
     Active Substance: FLUOROURACIL
     Dosage: ONCE
     Route: 041
     Dates: start: 20150106, end: 20150107
  13. 5-FLUOROURACIL [Concomitant]
     Active Substance: FLUOROURACIL
     Route: 040
     Dates: start: 20150324, end: 20150324
  14. 5-FLUOROURACIL [Concomitant]
     Active Substance: FLUOROURACIL
     Route: 040
     Dates: start: 20150414, end: 20150414
  15. CEFTRIAXONE. [Concomitant]
     Active Substance: CEFTRIAXONE
     Route: 042
     Dates: start: 20150314, end: 20150318
  16. LOPERMID [Concomitant]
     Indication: DIARRHOEA
     Route: 048
     Dates: start: 20150313, end: 20150318
  17. BEVACIZUMAB [Suspect]
     Active Substance: BEVACIZUMAB
     Indication: COLORECTAL CANCER
     Dosage: LAST DOSE PRIOR TO SAE: 14/OCT/2014
     Route: 042
     Dates: start: 20140430, end: 20150224
  18. 5-FLUOROURACIL [Concomitant]
     Active Substance: FLUOROURACIL
     Route: 041
     Dates: start: 20150324, end: 20150325
  19. FOLINIC ACID [Concomitant]
     Active Substance: LEUCOVORIN
     Route: 042
     Dates: start: 20150324, end: 20150324
  20. PANTOPRAZOLE SODIUM. [Concomitant]
     Active Substance: PANTOPRAZOLE SODIUM
     Indication: PROPHYLAXIS AGAINST GASTROINTESTINAL ULCER
     Route: 048
     Dates: start: 20140409
  21. IRINOTECAN [Concomitant]
     Active Substance: IRINOTECAN
     Indication: COLORECTAL CANCER
     Route: 042
     Dates: start: 20140430, end: 20150203
  22. OXALIPLATIN. [Concomitant]
     Active Substance: OXALIPLATIN
     Indication: COLORECTAL CANCER
     Route: 042
     Dates: start: 20150224, end: 20150224
  23. CLEXANE [Concomitant]
     Active Substance: ENOXAPARIN SODIUM
     Dosage: ONCE DAILY
     Route: 058
     Dates: start: 20150314, end: 20150318
  24. IBEROGAST [Concomitant]
     Active Substance: HERBALS
     Indication: MUSCLE SPASMS
     Route: 048
     Dates: start: 20150311, end: 20150314
  25. FOLINIC ACID [Concomitant]
     Active Substance: LEUCOVORIN
     Indication: COLORECTAL CANCER
     Route: 042
     Dates: start: 20140430, end: 20141014
  26. OXALIPLATIN. [Concomitant]
     Active Substance: OXALIPLATIN
     Route: 042
     Dates: start: 20150324, end: 20150324
  27. FORTECORTIN [Concomitant]
     Active Substance: DEXAMETHASONE
     Indication: NAUSEA
     Dosage: ON D1 CYCLICAL
     Route: 042
     Dates: start: 20140430
  28. ATROPIN [Concomitant]
     Indication: DIARRHOEA
     Dosage: BEFORE IRINOTECAN
     Route: 058
     Dates: start: 20140430
  29. VERGENTAN [Concomitant]
     Indication: NAUSEA
     Dosage: ON D2 AND D3
     Route: 048
     Dates: start: 20140501
  30. METRONIDAZOLE. [Concomitant]
     Active Substance: METRONIDAZOLE
     Route: 048
     Dates: start: 20150318, end: 20150320
  31. METOCLOPRAMIDE. [Concomitant]
     Active Substance: METOCLOPRAMIDE
     Indication: VOMITING
     Dosage: 1 AMPOULE 3 DAILY
     Route: 042
  32. OXALIPLATIN. [Concomitant]
     Active Substance: OXALIPLATIN
     Route: 042
     Dates: start: 20150414, end: 20150414
  33. METAMIZOL [Concomitant]
     Active Substance: METAMIZOLE SODIUM
     Route: 042
     Dates: start: 20150314, end: 20150318
  34. 5-FLUOROURACIL [Concomitant]
     Active Substance: FLUOROURACIL
     Route: 041
     Dates: start: 20140430, end: 20150204

REACTIONS (2)
  - Malignant neoplasm progression [Not Recovered/Not Resolved]
  - General physical health deterioration [Recovered/Resolved]

NARRATIVE: CASE EVENT DATE: 20141103
